FAERS Safety Report 16272621 (Version 5)
Quarter: 2021Q3

REPORT INFORMATION
  Report Type: Report from Study
  Country: ES (occurrence: ES)
  Receive Date: 20190506
  Receipt Date: 20210806
  Transmission Date: 20211014
  Serious: Yes (Life-Threatening)
  Sender: FDA-Public Use
  Company Number: ES-ROCHE-2307974

PATIENT
  Age: 65 Year
  Sex: Female
  Weight: 53.8 kg

DRUGS (102)
  1. DEXCHLORPHENIRAMINE [Concomitant]
     Active Substance: DEXCHLORPHENIRAMINE
     Dates: start: 20191003, end: 20191003
  2. DEXCHLORPHENIRAMINE [Concomitant]
     Active Substance: DEXCHLORPHENIRAMINE
     Dates: start: 20191022, end: 20191022
  3. DEXCHLORPHENIRAMINE [Concomitant]
     Active Substance: DEXCHLORPHENIRAMINE
     Dates: start: 20191223, end: 20191223
  4. DEXCHLORPHENIRAMINE [Concomitant]
     Active Substance: DEXCHLORPHENIRAMINE
     Dates: start: 20200204, end: 20200204
  5. RANITIDINE. [Concomitant]
     Active Substance: RANITIDINE
     Dates: start: 20191112, end: 20191112
  6. RANITIDINE. [Concomitant]
     Active Substance: RANITIDINE
     Dates: start: 20191223, end: 20191223
  7. RANITIDINE. [Concomitant]
     Active Substance: RANITIDINE
     Dates: start: 20200204, end: 20200204
  8. ONDANSETRON [Concomitant]
     Active Substance: ONDANSETRON
     Dates: start: 20190820, end: 20190820
  9. ONDANSETRON [Concomitant]
     Active Substance: ONDANSETRON
     Dates: start: 20200317, end: 20200317
  10. DEXKETOPROFEN [Concomitant]
     Active Substance: DEXKETOPROFEN
     Dates: start: 20190326, end: 20190326
  11. DEXKETOPROFEN [Concomitant]
     Active Substance: DEXKETOPROFEN
     Dates: start: 20200225, end: 20200225
  12. OMEPRAZOLE. [Concomitant]
     Active Substance: OMEPRAZOLE
     Dates: start: 20190910, end: 20190910
  13. FOSTER [Concomitant]
     Active Substance: BECLOMETHASONE\FORMOTEROL
     Indication: CHRONIC OBSTRUCTIVE PULMONARY DISEASE
     Dates: start: 2016
  14. PARACETAMOL [Concomitant]
     Active Substance: ACETAMINOPHEN
     Indication: NEOPLASM
     Route: 042
     Dates: start: 20190306, end: 20190306
  15. PARACETAMOL [Concomitant]
     Active Substance: ACETAMINOPHEN
     Dates: start: 20200114, end: 20200114
  16. RANITIDINE. [Concomitant]
     Active Substance: RANITIDINE
     Dates: start: 20190326, end: 20190326
  17. RANITIDINE. [Concomitant]
     Active Substance: RANITIDINE
     Dates: start: 20190507, end: 20190507
  18. RANITIDINE. [Concomitant]
     Active Substance: RANITIDINE
     Dates: start: 20191022, end: 20191022
  19. ONDANSETRON [Concomitant]
     Active Substance: ONDANSETRON
     Dates: start: 20191003, end: 20191003
  20. METOCLOPRAMIDE. [Concomitant]
     Active Substance: METOCLOPRAMIDE
     Indication: PREMEDICATION
     Dates: start: 20190618, end: 20190618
  21. POTASSIUM [Concomitant]
     Active Substance: POTASSIUM
     Indication: PROPHYLAXIS
     Dates: start: 20200323, end: 20200325
  22. INDOMETACIN [Concomitant]
     Active Substance: INDOMETHACIN
     Indication: PYREXIA
     Dates: start: 20190307, end: 20190308
  23. CEMIDON [Concomitant]
     Active Substance: ISONIAZID
     Indication: TUBERCULOSIS
     Dates: start: 20190219
  24. PARACETAMOL [Concomitant]
     Active Substance: ACETAMINOPHEN
     Dates: start: 20190730, end: 20190730
  25. PARACETAMOL [Concomitant]
     Active Substance: ACETAMINOPHEN
     Dates: start: 20191003, end: 20191003
  26. PARACETAMOL [Concomitant]
     Active Substance: ACETAMINOPHEN
     Dates: start: 20191022, end: 20191022
  27. PARACETAMOL [Concomitant]
     Active Substance: ACETAMINOPHEN
     Route: 042
     Dates: start: 20200317, end: 20200317
  28. DEXCHLORPHENIRAMINE [Concomitant]
     Active Substance: DEXCHLORPHENIRAMINE
     Dates: start: 20190416, end: 20190416
  29. DEXCHLORPHENIRAMINE [Concomitant]
     Active Substance: DEXCHLORPHENIRAMINE
     Dates: start: 20190820, end: 20190820
  30. DEXCHLORPHENIRAMINE [Concomitant]
     Active Substance: DEXCHLORPHENIRAMINE
     Dates: start: 20191203, end: 20191203
  31. RANITIDINE. [Concomitant]
     Active Substance: RANITIDINE
     Dates: start: 20190730, end: 20190730
  32. ONDANSETRON [Concomitant]
     Active Substance: ONDANSETRON
     Dates: start: 20191112, end: 20191112
  33. LEVOTHYROXINE. [Concomitant]
     Active Substance: LEVOTHYROXINE
     Indication: HYPOTHYROIDISM
     Dates: start: 2017
  34. PARACETAMOL [Concomitant]
     Active Substance: ACETAMINOPHEN
     Dates: start: 20191112, end: 20191112
  35. PARACETAMOL [Concomitant]
     Active Substance: ACETAMINOPHEN
     Dates: start: 20191203, end: 20191203
  36. PARACETAMOL [Concomitant]
     Active Substance: ACETAMINOPHEN
     Dates: start: 20200204, end: 20200204
  37. PARACETAMOL [Concomitant]
     Active Substance: ACETAMINOPHEN
     Dates: start: 20200225, end: 20200225
  38. PARACETAMOL [Concomitant]
     Active Substance: ACETAMINOPHEN
     Dates: start: 20190311, end: 20190311
  39. DEXCHLORPHENIRAMINE [Concomitant]
     Active Substance: DEXCHLORPHENIRAMINE
     Dates: start: 20190326, end: 20190326
  40. DEXCHLORPHENIRAMINE [Concomitant]
     Active Substance: DEXCHLORPHENIRAMINE
     Dates: start: 20190709, end: 20190709
  41. DEXCHLORPHENIRAMINE [Concomitant]
     Active Substance: DEXCHLORPHENIRAMINE
     Dates: start: 20191112, end: 20191112
  42. DEXCHLORPHENIRAMINE [Concomitant]
     Active Substance: DEXCHLORPHENIRAMINE
     Dates: start: 20200114, end: 20200114
  43. RANITIDINE. [Concomitant]
     Active Substance: RANITIDINE
     Dates: start: 20190528, end: 20190528
  44. RANITIDINE. [Concomitant]
     Active Substance: RANITIDINE
     Dates: start: 20200317, end: 20200317
  45. ONDANSETRON [Concomitant]
     Active Substance: ONDANSETRON
     Dates: start: 20190618, end: 20190618
  46. ONDANSETRON [Concomitant]
     Active Substance: ONDANSETRON
     Dates: start: 20190730, end: 20190730
  47. ONDANSETRON [Concomitant]
     Active Substance: ONDANSETRON
     Dates: start: 20190910, end: 20190910
  48. ONDANSETRON [Concomitant]
     Active Substance: ONDANSETRON
     Dates: start: 20200225, end: 20200225
  49. METOCLOPRAMIDE. [Concomitant]
     Active Substance: METOCLOPRAMIDE
     Dates: start: 20190308
  50. LORATADINE. [Concomitant]
     Active Substance: LORATADINE
     Indication: PRURITUS
     Dates: start: 20190311, end: 20190326
  51. METAMIZOLE [Concomitant]
     Active Substance: METAMIZOLE
     Indication: PYREXIA
     Dates: start: 20190327, end: 20190328
  52. PARACETAMOL [Concomitant]
     Active Substance: ACETAMINOPHEN
     Indication: PREMEDICATION
     Route: 042
     Dates: start: 20190416, end: 20190416
  53. PARACETAMOL [Concomitant]
     Active Substance: ACETAMINOPHEN
     Dates: start: 20190327, end: 20190328
  54. DEXCHLORPHENIRAMINE [Concomitant]
     Active Substance: DEXCHLORPHENIRAMINE
     Dates: start: 20190507, end: 20190507
  55. DEXCHLORPHENIRAMINE [Concomitant]
     Active Substance: DEXCHLORPHENIRAMINE
     Dates: start: 20190528, end: 20190528
  56. DEXCHLORPHENIRAMINE [Concomitant]
     Active Substance: DEXCHLORPHENIRAMINE
     Dates: start: 20200225, end: 20200225
  57. RANITIDINE. [Concomitant]
     Active Substance: RANITIDINE
     Indication: PREMEDICATION
     Dates: start: 20190306, end: 20190306
  58. RANITIDINE. [Concomitant]
     Active Substance: RANITIDINE
     Dates: start: 20190618, end: 20190618
  59. RANITIDINE. [Concomitant]
     Active Substance: RANITIDINE
     Dates: start: 20190910, end: 20190910
  60. RANITIDINE. [Concomitant]
     Active Substance: RANITIDINE
     Dates: start: 20191003, end: 20191003
  61. ONDANSETRON [Concomitant]
     Active Substance: ONDANSETRON
     Dates: start: 20191223, end: 20191223
  62. OMEPRAZOLE. [Concomitant]
     Active Substance: OMEPRAZOLE
     Indication: GASTROINTESTINAL DISORDER PROPHYLAXIS
     Dates: start: 20190417
  63. NOLOTIL [Concomitant]
     Indication: MYALGIA
     Dates: start: 20190311, end: 20190311
  64. PRAVAFENIX [Concomitant]
     Active Substance: FENOFIBRATE\PRAVASTATIN
     Indication: HYPERCHOLESTEROLAEMIA
     Dates: start: 2015
  65. PARACETAMOL [Concomitant]
     Active Substance: ACETAMINOPHEN
     Indication: PYREXIA
     Dates: start: 20190618, end: 20190618
  66. PARACETAMOL [Concomitant]
     Active Substance: ACETAMINOPHEN
     Dates: start: 20190820, end: 20190820
  67. PARACETAMOL [Concomitant]
     Active Substance: ACETAMINOPHEN
     Dates: start: 20190308, end: 20190313
  68. DEXCHLORPHENIRAMINE [Concomitant]
     Active Substance: DEXCHLORPHENIRAMINE
     Indication: PREMEDICATION
     Dates: start: 20190306, end: 20190306
  69. RANITIDINE. [Concomitant]
     Active Substance: RANITIDINE
     Dates: start: 20190416, end: 20190416
  70. RANITIDINE. [Concomitant]
     Active Substance: RANITIDINE
     Dates: start: 20190709, end: 20190709
  71. RANITIDINE. [Concomitant]
     Active Substance: RANITIDINE
     Dates: start: 20191203, end: 20191203
  72. RANITIDINE. [Concomitant]
     Active Substance: RANITIDINE
     Dates: start: 20200225, end: 20200225
  73. ONDANSETRON [Concomitant]
     Active Substance: ONDANSETRON
     Dates: start: 20190416, end: 20190416
  74. ONDANSETRON [Concomitant]
     Active Substance: ONDANSETRON
     Dates: start: 20200204, end: 20200204
  75. ONDANSETRON [Concomitant]
     Active Substance: ONDANSETRON
     Dates: start: 20190326, end: 20190326
  76. ENANTYUM [Concomitant]
     Active Substance: DEXKETOPROFEN TROMETAMOL
     Dates: start: 20190910, end: 20190910
  77. PRAVAFENIX [Concomitant]
     Active Substance: FENOFIBRATE\PRAVASTATIN
     Indication: HYPERTRIGLYCERIDAEMIA
  78. UMECLIDINIUM BROMIDE [Concomitant]
     Active Substance: UMECLIDINIUM BROMIDE
     Indication: CHRONIC OBSTRUCTIVE PULMONARY DISEASE
     Dates: start: 2016, end: 20210309
  79. PARACETAMOL [Concomitant]
     Active Substance: ACETAMINOPHEN
     Indication: PAIN
     Dates: start: 2018
  80. PARACETAMOL [Concomitant]
     Active Substance: ACETAMINOPHEN
     Indication: MYALGIA
     Dates: start: 20190528, end: 20190528
  81. PARACETAMOL [Concomitant]
     Active Substance: ACETAMINOPHEN
     Dates: start: 20190910, end: 20190910
  82. PARACETAMOL [Concomitant]
     Active Substance: ACETAMINOPHEN
     Dates: start: 20191223, end: 20191223
  83. DEXCHLORPHENIRAMINE [Concomitant]
     Active Substance: DEXCHLORPHENIRAMINE
     Dates: start: 20190730, end: 20190730
  84. DEXCHLORPHENIRAMINE [Concomitant]
     Active Substance: DEXCHLORPHENIRAMINE
     Dates: start: 20190910, end: 20190910
  85. RANITIDINE. [Concomitant]
     Active Substance: RANITIDINE
     Dates: start: 20200114, end: 20200114
  86. ONDANSETRON [Concomitant]
     Active Substance: ONDANSETRON
     Indication: PREMEDICATION
     Dates: start: 20190306, end: 20190306
  87. ONDANSETRON [Concomitant]
     Active Substance: ONDANSETRON
     Dates: start: 20190507, end: 20190507
  88. ONDANSETRON [Concomitant]
     Active Substance: ONDANSETRON
     Dates: start: 20190528, end: 20190528
  89. ONDANSETRON [Concomitant]
     Active Substance: ONDANSETRON
     Dates: start: 20190709, end: 20190709
  90. METOCLOPRAMIDE. [Concomitant]
     Active Substance: METOCLOPRAMIDE
     Indication: NAUSEA
     Dates: start: 20190910, end: 20190910
  91. PRIMPERAN [Concomitant]
     Active Substance: METOCLOPRAMIDE HYDROCHLORIDE
     Indication: PREMEDICATION
     Dates: start: 20200225, end: 20200225
  92. PHOSPHORUS [Concomitant]
     Active Substance: PHOSPHORUS
     Indication: PREMEDICATION
     Dates: start: 20200323, end: 20200325
  93. NOLOTIL [Concomitant]
     Indication: HEADACHE
     Dates: start: 20190311, end: 20190313
  94. RO6874281 (FAP IL2V MAB) [Suspect]
     Active Substance: SIMLUKAFUSP ALFA
     Indication: NEOPLASM
     Dosage: STRENGTH: 50 MG/2ML?TOTAL VOLUME PRIOR TO SAE: 8.7 ML.?DATE OF MOST RECENT DOSE OF RO6874281 PRIOR T
     Route: 042
     Dates: start: 20190306
  95. ATEZOLIZUMAB. [Suspect]
     Active Substance: ATEZOLIZUMAB
     Indication: NEOPLASM
     Dosage: STRENGTH: 1200 MG/20ML?DATE OF MOST RECENT DOSE OF ATEZOLIZUMAB PRIOR TO AE ONSET 16?APR?19 AT 12:54
     Route: 042
     Dates: start: 20190306
  96. PARACETAMOL [Concomitant]
     Active Substance: ACETAMINOPHEN
     Indication: HEADACHE
     Route: 042
     Dates: start: 20190507, end: 20190507
  97. PARACETAMOL [Concomitant]
     Active Substance: ACETAMINOPHEN
     Dates: start: 20190709, end: 20190709
  98. DEXCHLORPHENIRAMINE [Concomitant]
     Active Substance: DEXCHLORPHENIRAMINE
     Dates: start: 20200317, end: 20200317
  99. RANITIDINE. [Concomitant]
     Active Substance: RANITIDINE
     Dates: start: 20190820, end: 20190820
  100. ONDANSETRON [Concomitant]
     Active Substance: ONDANSETRON
     Dates: start: 20191022, end: 20191022
  101. ONDANSETRON [Concomitant]
     Active Substance: ONDANSETRON
     Dates: start: 20191203, end: 20191203
  102. ONDANSETRON [Concomitant]
     Active Substance: ONDANSETRON
     Dates: start: 20200114, end: 20200114

REACTIONS (1)
  - Lymphopenia [Recovered/Resolved]

NARRATIVE: CASE EVENT DATE: 20190327
